FAERS Safety Report 5275850-2 (Version None)
Quarter: 2007Q1

REPORT INFORMATION
  Report Type: 
  Country: None (occurrence: None)
  Receive Date: 20061213
  Receipt Date: 20050105
  Transmission Date: 20070707
  Serious: Yes (Hospitalization)
  Sender: FDA-Public Use
  Company Number: 2004UW25091

PATIENT
  Age: 17 Year
  Sex: Male
  Weight: 159.2126 kg

DRUGS (4)
  1. SEROQUEL [Suspect]
     Indication: AFFECTIVE DISORDER
     Dosage: 1400 MG DAILY PO
     Route: 048
     Dates: start: 20040401, end: 20041207
  2. SEROQUEL [Suspect]
     Indication: MENTAL RETARDATION SEVERITY UNSPECIFIED
     Dosage: 1400 MG DAILY PO
     Route: 048
     Dates: start: 20040401, end: 20041207
  3. TRILEPTAL [Concomitant]
  4. SYNTHROID [Concomitant]

REACTIONS (1)
  - PRIAPISM [None]
